FAERS Safety Report 23678771 (Version 1)
Quarter: 2024Q1

REPORT INFORMATION
  Report Type: Spontaneous
  Country: RU (occurrence: RU)
  Receive Date: 20240327
  Receipt Date: 20240327
  Transmission Date: 20240410
  Serious: Yes (Other)
  Sender: FDA-Public Use
  Company Number: RU-009507513-2403RUS007573

PATIENT
  Age: 60 Year
  Sex: Female
  Weight: 73 kg

DRUGS (5)
  1. PEMBROLIZUMAB [Suspect]
     Active Substance: PEMBROLIZUMAB
     Indication: Uterine cancer
     Dosage: 200 MILLIGRAM, Q3W
     Route: 042
     Dates: start: 202104
  2. LENVATINIB MESYLATE [Suspect]
     Active Substance: LENVATINIB MESYLATE
     Indication: Uterine cancer
     Dosage: 20 MILLIGRAM
     Dates: start: 202104, end: 202104
  3. LENVATINIB MESYLATE [Suspect]
     Active Substance: LENVATINIB MESYLATE
     Dosage: 14 MILLIGRAM
     Dates: start: 202104, end: 202203
  4. LENVATINIB MESYLATE [Suspect]
     Active Substance: LENVATINIB MESYLATE
     Dosage: 10 MILLIGRAM
     Dates: start: 202203, end: 202205
  5. LENVATINIB MESYLATE [Suspect]
     Active Substance: LENVATINIB MESYLATE
     Dosage: 8 MILLIGRAM
     Dates: start: 202305

REACTIONS (16)
  - Gastritis erosive [Unknown]
  - Volvulus [Unknown]
  - Asthenia [Recovered/Resolved]
  - Dysphonia [Recovered/Resolved]
  - Visual impairment [Recovered/Resolved]
  - Blood pressure increased [Unknown]
  - Blood thyroid stimulating hormone increased [Unknown]
  - Blood thyroid stimulating hormone increased [Unknown]
  - Frequent bowel movements [Unknown]
  - Chronic gastritis [Unknown]
  - Gastrooesophageal reflux disease [Unknown]
  - Diverticulum intestinal [Unknown]
  - Gastrointestinal hypomotility [Unknown]
  - Arthralgia [Unknown]
  - Chronic rhinosinusitis with nasal polyps [Unknown]
  - Weight decreased [Unknown]

NARRATIVE: CASE EVENT DATE: 20210401
